FAERS Safety Report 17797931 (Version 2)
Quarter: 2020Q2

REPORT INFORMATION
  Report Type: Spontaneous
  Country: US (occurrence: US)
  Receive Date: 20200518
  Receipt Date: 20200522
  Transmission Date: 20200714
  Serious: No
  Sender: FDA-Public Use
  Company Number: US-PFIZER INC-2020195564

PATIENT
  Age: 44 Year
  Sex: Female

DRUGS (1)
  1. XELJANZ [Suspect]
     Active Substance: TOFACITINIB CITRATE
     Dosage: 5 MG

REACTIONS (4)
  - Pain [Recovering/Resolving]
  - Loss of personal independence in daily activities [Recovering/Resolving]
  - Fatigue [Recovering/Resolving]
  - Musculoskeletal stiffness [Recovering/Resolving]
